FAERS Safety Report 21544679 (Version 1)
Quarter: 2022Q4

REPORT INFORMATION
  Report Type: Spontaneous
  Country: US (occurrence: None)
  Receive Date: 20221101
  Receipt Date: 20221101
  Transmission Date: 20230112
  Serious: Yes (unspecified)
  Sender: FDA-Public Use
  Company Number: None

PATIENT
  Age: 64 Year
  Sex: Male

DRUGS (1)
  1. CAMPHOR (NATURAL)\MENTHOL [Suspect]
     Active Substance: CAMPHOR (NATURAL)\MENTHOL

REACTIONS (3)
  - Burns second degree [None]
  - Thermal burn [None]
  - Application site burn [None]

NARRATIVE: CASE EVENT DATE: 20220422
